FAERS Safety Report 15116834 (Version 2)
Quarter: 2018Q3

REPORT INFORMATION
  Report Type: Spontaneous
  Country: IE (occurrence: IE)
  Receive Date: 20180706
  Receipt Date: 20180731
  Transmission Date: 20181010
  Serious: Yes (Hospitalization)
  Sender: FDA-Public Use
  Company Number: IE-PFIZER INC-2018189682

PATIENT
  Age: 93 Year
  Sex: Male

DRUGS (5)
  1. NEURONTIN [Suspect]
     Active Substance: GABAPENTIN
     Dosage: 100 MG, EVERY 24 HOURS ONLY AT NIGHT
     Route: 048
  2. BRIEKA [Concomitant]
     Indication: NEURALGIA
     Dosage: 25 MG, (MOSTLY AT NIGHT, TAKES ONE OR TWO)
  3. NEURONTIN [Suspect]
     Active Substance: GABAPENTIN
     Dosage: 100 MG, DAILY FOR 2 WEEKS
     Route: 048
  4. NEURONTIN [Suspect]
     Active Substance: GABAPENTIN
     Dosage: 200 MG AT NIGHT (NOCTE), FOR TWO WEEKS ( 200MG AT NIGHT CURRENTLY)
     Route: 048
  5. NEURONTIN [Suspect]
     Active Substance: GABAPENTIN
     Dosage: 200 MG, FOR 4 WEEKS
     Route: 048

REACTIONS (6)
  - Feeling abnormal [Not Recovered/Not Resolved]
  - Dermatitis [Recovering/Resolving]
  - Rash [Not Recovered/Not Resolved]
  - Eczema asteatotic [Unknown]
  - Pruritus [Recovered/Resolved]
  - Drug ineffective [Unknown]
